FAERS Safety Report 15554028 (Version 2)
Quarter: 2018Q4

REPORT INFORMATION
  Report Type: Report from Study
  Country: JP (occurrence: JP)
  Receive Date: 20181026
  Receipt Date: 20181111
  Transmission Date: 20190205
  Serious: Yes (Other)
  Sender: FDA-Public Use
  Company Number: JP-BIOGEN-2018BI00527538

PATIENT
  Age: 2 Year
  Sex: Male
  Weight: 8.2 kg

DRUGS (14)
  1. HERBAL NOS [Concomitant]
     Active Substance: HERBALS
     Indication: GASTROINTESTINAL HYPOMOTILITY
     Route: 050
  2. EPINASTINE. [Concomitant]
     Active Substance: EPINASTINE HYDROCHLORIDE
     Indication: RHINITIS ALLERGIC
     Route: 050
  3. SEVOFLURANE. [Concomitant]
     Active Substance: SEVOFLURANE
     Route: 055
     Dates: start: 20180214, end: 20180214
  4. SEVOFLURANE. [Concomitant]
     Active Substance: SEVOFLURANE
     Route: 055
     Dates: start: 20180404, end: 20180404
  5. SPINRAZA [Suspect]
     Active Substance: NUSINERSEN
     Indication: SPINAL MUSCULAR ATROPHY
     Route: 037
     Dates: start: 20180131, end: 20180131
  6. PROPOFOL. [Concomitant]
     Active Substance: PROPOFOL
     Indication: ANAESTHESIA PROCEDURE
     Route: 050
     Dates: start: 20180131, end: 20180131
  7. PROPOFOL. [Concomitant]
     Active Substance: PROPOFOL
     Route: 055
     Dates: start: 20180404, end: 20180404
  8. SEVOFLURANE. [Concomitant]
     Active Substance: SEVOFLURANE
     Indication: ANAESTHESIA PROCEDURE
     Route: 055
     Dates: start: 20180131, end: 20180131
  9. SPINRAZA [Suspect]
     Active Substance: NUSINERSEN
     Route: 037
     Dates: start: 20180214, end: 20180214
  10. PROPOFOL. [Concomitant]
     Active Substance: PROPOFOL
     Route: 055
     Dates: start: 20180228, end: 20180228
  11. SEVOFLURANE. [Concomitant]
     Active Substance: SEVOFLURANE
     Route: 055
     Dates: start: 20180228, end: 20180228
  12. PROPOFOL. [Concomitant]
     Active Substance: PROPOFOL
     Route: 055
     Dates: start: 20180214, end: 20180214
  13. SPINRAZA [Suspect]
     Active Substance: NUSINERSEN
     Route: 037
     Dates: start: 20180228, end: 20180228
  14. SPINRAZA [Suspect]
     Active Substance: NUSINERSEN
     Route: 037
     Dates: start: 20180404, end: 20180404

REACTIONS (4)
  - Upper gastrointestinal haemorrhage [Recovered/Resolved]
  - Increased upper airway secretion [Recovered/Resolved]
  - Pyrexia [Recovered/Resolved]
  - Somnolence [Recovered/Resolved]

NARRATIVE: CASE EVENT DATE: 20180131
